FAERS Safety Report 9206654 (Version 2)
Quarter: 2013Q4

REPORT INFORMATION
  Report Type: Spontaneous
  Country: US (occurrence: US)
  Receive Date: 20130403
  Receipt Date: 20131118
  Transmission Date: 20140711
  Serious: Yes (Other)
  Sender: FDA-Public Use
  Company Number: US-BAYER-2013-040271

PATIENT
  Age: 34 Year
  Sex: Female

DRUGS (9)
  1. YAZ [Suspect]
     Dosage: UNK
     Dates: start: 2007, end: 2010
  2. YASMIN [Suspect]
     Dosage: UNK
     Dates: start: 2007, end: 2010
  3. OCELLA [Suspect]
     Dosage: UNK
     Dates: start: 2007, end: 2010
  4. GIANVI [Suspect]
  5. SUCRALFATE [Concomitant]
     Dosage: 1 GM
     Dates: start: 20100621
  6. HYDROCODONE/ACETAMINOPHEN [Concomitant]
     Dosage: 10-650 MG
     Dates: start: 20100715
  7. CEPHALEXIN [Concomitant]
     Dosage: 500 MG, UNK
     Dates: start: 20100716
  8. CELEXA [Concomitant]
     Dosage: UNK
     Dates: start: 20100830
  9. IBUPROFEN [Concomitant]
     Dosage: UNK
     Dates: start: 20100830

REACTIONS (10)
  - Cholelithiasis [None]
  - Cholecystitis [None]
  - Abdominal pain [None]
  - Injury [None]
  - Pain [None]
  - Emotional distress [None]
  - Anxiety [None]
  - General physical health deterioration [None]
  - Anhedonia [None]
  - Fear [None]
